FAERS Safety Report 9392372 (Version 1)
Quarter: 2013Q3

REPORT INFORMATION
  Report Type: Spontaneous
  Country: NL (occurrence: NL)
  Receive Date: 20130710
  Receipt Date: 20130710
  Transmission Date: 20140515
  Serious: Yes (Hospitalization)
  Sender: FDA-Public Use
  Company Number: NL-BRISTOL-MYERS SQUIBB COMPANY-19081546

PATIENT
  Age: 69 Year
  Sex: Female
  Weight: 79 kg

DRUGS (8)
  1. BYETTA [Suspect]
     Indication: TYPE 2 DIABETES MELLITUS
     Dosage: INITIAL DOSE :2DD 5MCG,DOSE INCREASED :2DD 10MCG.
     Dates: start: 20121221
  2. DIAZEPAM [Concomitant]
     Dosage: AS NEEDED
     Dates: start: 20110329
  3. ACETYLSALICYLIC ACID [Concomitant]
     Dates: start: 20120723
  4. PANTOPRAZOLE [Concomitant]
     Dates: start: 20030901
  5. CRESTOR [Concomitant]
     Dates: start: 20060329
  6. BISOPROLOL [Concomitant]
     Dates: start: 20040129
  7. MACROGOL [Concomitant]
     Dates: start: 20120507
  8. PARACETAMOL [Concomitant]
     Dates: start: 20130215

REACTIONS (2)
  - Crohn^s disease [Recovering/Resolving]
  - Rectal haemorrhage [Unknown]
